FAERS Safety Report 17192043 (Version 1)
Quarter: 2019Q4

REPORT INFORMATION
  Report Type: Report from Study
  Country: DE (occurrence: DE)
  Receive Date: 20191223
  Receipt Date: 20191223
  Transmission Date: 20200122
  Serious: Yes (Congenital Anomaly)
  Sender: FDA-Public Use
  Company Number: DE-TEVA-2019-DE-1156767

PATIENT
  Sex: Female

DRUGS (5)
  1. PARACETAMOL [Suspect]
     Active Substance: ACETAMINOPHEN
     Indication: PAIN
     Dosage: 1000-1500 MG/DAY, BETWEEN GESTATIONAL WEEKS 9+0 AND 9+5
     Route: 064
  2. VENLAFAXINE [Suspect]
     Active Substance: VENLAFAXINE HYDROCHLORIDE
     Dosage: DURING ALL TRIMESTERS
     Route: 064
  3. CEFUROXIME. [Suspect]
     Active Substance: CEFUROXIME
     Dosage: DURING THE FIRST TRIMESTER
     Route: 064
  4. NICOTINE. [Suspect]
     Active Substance: NICOTINE
     Dosage: DURING ALL TRIMESTERS
     Route: 064
  5. INFLUENZA VIRUS VACCINE [Suspect]
     Active Substance: INFLUENZA VIRUS VACCINE
     Dosage: DURING THE FIRST TRIMESTER
     Route: 064

REACTIONS (4)
  - Congenital tricuspid valve incompetence [Unknown]
  - Foetal exposure during pregnancy [Unknown]
  - Congenital pulmonary hypertension [Unknown]
  - Patent ductus arteriosus [Unknown]
